FAERS Safety Report 9746218 (Version 2)
Quarter: 2014Q1

REPORT INFORMATION
  Report Type: Spontaneous
  Country: IT (occurrence: None)
  Receive Date: 20131205
  Receipt Date: 20140210
  Transmission Date: 20141002
  Serious: Yes (Other)
  Sender: FDA-Public Use
  Company Number: AUR-APL-2013-09781

PATIENT
  Age: 84 Year
  Sex: Male

DRUGS (5)
  1. AMOXICILLIN [Suspect]
     Indication: PRODUCT USED FOR UNKNOWN INDICATION
     Dosage: 1 D
     Route: 048
     Dates: start: 20120720, end: 20120721
  2. XATRAL (ALFUZOSIN HYDROCHLORIDE) [Concomitant]
  3. TAPAZOLE (THIAMAZOLE) [Concomitant]
  4. PANTORC (PANTOP4AZOLE SODIUM SESQUIHYDRATE) [Concomitant]
  5. RAMIPRIL (RAMIPRIL) [Concomitant]

REACTIONS (2)
  - Hypersensitivity [None]
  - Lip oedema [None]
